FAERS Safety Report 10098339 (Version 3)
Quarter: 2014Q2

REPORT INFORMATION
  Report Type: Spontaneous
  Country: JP (occurrence: JP)
  Receive Date: 20140423
  Receipt Date: 20140602
  Transmission Date: 20141212
  Serious: Yes (Hospitalization)
  Sender: FDA-Public Use
  Company Number: JP-BAYER-2013-152636

PATIENT
  Age: 77 Year
  Sex: Male
  Weight: 55 kg

DRUGS (5)
  1. STIVARGA [Suspect]
     Indication: GASTROINTESTINAL STROMAL TUMOUR
     Dosage: 120 MG, QD
     Route: 048
     Dates: start: 20131029, end: 20131105
  2. STIVARGA [Suspect]
     Indication: GASTROINTESTINAL STROMAL TUMOUR
     Dosage: 120 MG, QD
     Route: 048
     Dates: start: 20131112, end: 20131125
  3. BLOPRESS [Concomitant]
     Dosage: DAILY DOSE 8 MG
     Route: 048
     Dates: start: 20131029, end: 20131203
  4. AMLODIPINE [Concomitant]
     Dosage: DAILY DOSE 2.5 MG
     Route: 048
     Dates: end: 20131203
  5. CRESTOR [Concomitant]
     Dosage: DAILY DOSE 2.5 MG
     Route: 048
     Dates: end: 20131203

REACTIONS (2)
  - Drug-induced liver injury [None]
  - Autoimmune hepatitis [None]
